FAERS Safety Report 5179474-7 (Version None)
Quarter: 2006Q4

REPORT INFORMATION
  Report Type: 
  Country: None (occurrence: None)
  Receive Date: 20061219
  Receipt Date: 20061018
  Transmission Date: 20070319
  Serious: Yes (Life-Threatening)
  Sender: FDA-Public Use
  Company Number: DE-ROCHE-467860

PATIENT
  Age: 49 Year
  Sex: Female
  Weight: 60.6 kg

DRUGS (2)
  1. XELODA [Suspect]
     Indication: MALIGNANT NEOPLASM OF LACRIMAL GLAND
     Route: 048
     Dates: start: 20061010, end: 20061016
  2. AVASTIN [Suspect]
     Indication: MALIGNANT NEOPLASM OF LACRIMAL GLAND
     Dosage: DOSAGE REGIMEN REPORTED AS ONCE.
     Route: 042
     Dates: start: 20061010, end: 20061010

REACTIONS (4)
  - ACUTE CORONARY SYNDROME [None]
  - ANXIETY [None]
  - RESTLESSNESS [None]
  - TRISMUS [None]
